FAERS Safety Report 7893700-2 (Version None)
Quarter: 2011Q4

REPORT INFORMATION
  Report Type: 
  Country: None (occurrence: None)
  Receive Date: 20111104
  Receipt Date: 20111028
  Transmission Date: 20120403
  Serious: Yes (Other)
  Sender: FDA-Public Use
  Company Number: JP-B.I. PHARMACEUTICALS,INC./RIDGEFIELD-2011-BP-24865NB

PATIENT
  Age: 83 Year
  Sex: Female
  Weight: 50 kg

DRUGS (15)
  1. VERAPAMIL HCL [Concomitant]
     Dosage: 40 MG
     Route: 048
  2. LASIX [Concomitant]
     Dosage: 20 MG
     Route: 048
  3. NEO-MERCAZOLE TAB [Suspect]
     Indication: BASEDOW'S DISEASE
     Dosage: 10 MG
     Route: 048
     Dates: start: 20111007, end: 20111014
  4. RABEPRAZOLE SODIUM [Concomitant]
     Dosage: 10 MG
     Route: 048
  5. ALDACTONE [Concomitant]
     Dosage: 50 MG
     Route: 048
  6. CANDESARTAN CILEXETIL AND HYDROCHLOROTHIAZIDE [Concomitant]
     Route: 048
  7. ACTOS [Concomitant]
     Dosage: 15 MG
     Route: 048
  8. AMLODIPINE [Concomitant]
     Dosage: 5 MG
     Route: 048
  9. URINORM [Concomitant]
     Dosage: 5 MG
     Route: 048
  10. PRADAXA [Suspect]
     Indication: THROMBOSIS PROPHYLAXIS
     Dosage: 220 MG
     Route: 048
     Dates: start: 20110819, end: 20111014
  11. BEZATOL SR [Concomitant]
     Dosage: 50 MG
     Route: 048
  12. FERROUS CITRATE [Concomitant]
     Dosage: 50 MG
     Route: 048
  13. LENDORMIN D TABLETS [Concomitant]
     Dosage: 0.25 MG
     Route: 048
  14. ASPIRIN [Suspect]
     Indication: THROMBOSIS PROPHYLAXIS
     Dosage: 100 MG
     Route: 048
     Dates: start: 20090701, end: 20111014
  15. GLIMICRON [Concomitant]
     Dosage: 20 MG
     Route: 048

REACTIONS (1)
  - PLATELET COUNT DECREASED [None]
